FAERS Safety Report 13289100 (Version 1)
Quarter: 2017Q1

REPORT INFORMATION
  Report Type: Spontaneous
  Country: FI (occurrence: FI)
  Receive Date: 20170302
  Receipt Date: 20170302
  Transmission Date: 20170428
  Serious: Yes (Other)
  Sender: FDA-Public Use
  Company Number: FI-AMGEN-FINSP2017029788

PATIENT
  Age: 66 Year
  Sex: Male

DRUGS (2)
  1. XGEVA [Suspect]
     Active Substance: DENOSUMAB
     Indication: METASTASES TO BONE
     Dosage: UNK, Q4WK
     Route: 065
     Dates: start: 20140206, end: 20160623
  2. XGEVA [Suspect]
     Active Substance: DENOSUMAB
     Dosage: UNK, Q3MO
     Route: 065

REACTIONS (1)
  - Osteonecrosis of jaw [Recovered/Resolved with Sequelae]

NARRATIVE: CASE EVENT DATE: 20160623
